FAERS Safety Report 19012168 (Version 1)
Quarter: 2021Q1

REPORT INFORMATION
  Report Type: Spontaneous
  Country: US (occurrence: US)
  Receive Date: 20210316
  Receipt Date: 20210316
  Transmission Date: 20210420
  Serious: No
  Sender: FDA-Public Use
  Company Number: US-SA-2021SA087550

PATIENT
  Sex: Female

DRUGS (2)
  1. BUMEX [Concomitant]
     Active Substance: BUMETANIDE
     Dosage: 2 MG, PRN
  2. DUPIXENT [Suspect]
     Active Substance: DUPILUMAB
     Indication: ASTHMA
     Dosage: 300 MG, QOW
     Route: 058
     Dates: start: 202102

REACTIONS (4)
  - Lymphoedema [Unknown]
  - Oedema peripheral [Unknown]
  - Condition aggravated [Unknown]
  - Joint swelling [Unknown]
